FAERS Safety Report 8642034 (Version 2)
Quarter: 2013Q2

REPORT INFORMATION
  Report Type: Report from Study
  Country: CA (occurrence: CA)
  Receive Date: 20120628
  Receipt Date: 20130617
  Transmission Date: 20140414
  Serious: Yes (Hospitalization, Other)
  Sender: FDA-Public Use
  Company Number: PHHY2012CA055083

PATIENT
  Age: 18 Year
  Sex: Male

DRUGS (1)
  1. TOBI PODHALER [Suspect]
     Indication: CYSTIC FIBROSIS
     Dosage: UNK UKN, UNK

REACTIONS (2)
  - Pulmonary function test decreased [Unknown]
  - Lung disorder [Unknown]
